FAERS Safety Report 21480341 (Version 1)
Quarter: 2022Q4

REPORT INFORMATION
  Report Type: Other
  Country: None (occurrence: JP)
  Receive Date: 20221019
  Receipt Date: 20221019
  Transmission Date: 20230113
  Serious: Yes (Hospitalization, Other)
  Sender: FDA-Public Use
  Company Number: JP-Breckenridge Pharmaceutical, Inc.-2133980

PATIENT
  Age: 51 Year
  Sex: Male

DRUGS (4)
  1. LEVETIRACETAM [Suspect]
     Active Substance: LEVETIRACETAM
     Indication: Suicide attempt
     Route: 048
  2. TELMISARTAN [Suspect]
     Active Substance: TELMISARTAN
  3. AMLODIPINE [Suspect]
     Active Substance: AMLODIPINE BESYLATE
  4. BROTIZOLAM [Suspect]
     Active Substance: BROTIZOLAM

REACTIONS (7)
  - Overdose [Recovered/Resolved]
  - Toxicity to various agents [Recovering/Resolving]
  - Hypotension [Unknown]
  - Altered state of consciousness [Unknown]
  - Oliguria [Recovered/Resolved]
  - Blood creatine increased [Recovering/Resolving]
  - Acute kidney injury [Unknown]
